FAERS Safety Report 13942376 (Version 1)
Quarter: 2017Q3

REPORT INFORMATION
  Report Type: Spontaneous
  Country: US (occurrence: US)
  Receive Date: 20170907
  Receipt Date: 20170907
  Transmission Date: 20171127
  Serious: Yes (Hospitalization)
  Sender: FDA-Public Use
  Company Number: US-AMGEN-USASP2017125397

PATIENT
  Age: 67 Year
  Sex: Female

DRUGS (5)
  1. REPATHA [Suspect]
     Active Substance: EVOLOCUMAB
     Indication: BLOOD CHOLESTEROL INCREASED
     Dosage: 140 MG/ML, UNK
     Route: 058
     Dates: start: 20170728
  2. REPATHA [Suspect]
     Active Substance: EVOLOCUMAB
     Indication: HYPERLIPIDAEMIA
  3. REPLENEX [Suspect]
     Active Substance: DIETARY SUPPLEMENT
     Indication: INFLAMMATION
     Dosage: UNK
     Route: 065
     Dates: end: 20170805
  4. MAGNESIUM [Concomitant]
     Active Substance: MAGNESIUM
     Indication: HEART RATE IRREGULAR
     Dosage: 200 MG, 2 TABS BID
  5. VITAMIN B12 [Concomitant]
     Active Substance: CYANOCOBALAMIN
     Dosage: UNK

REACTIONS (8)
  - Dysphonia [Recovering/Resolving]
  - Tinnitus [Recovered/Resolved]
  - Chest pain [Not Recovered/Not Resolved]
  - Headache [Recovered/Resolved]
  - Drug interaction [Not Recovered/Not Resolved]
  - Back pain [Unknown]
  - Heart rate irregular [Not Recovered/Not Resolved]
  - Injection site rash [Recovering/Resolving]

NARRATIVE: CASE EVENT DATE: 201708
